FAERS Safety Report 7300961-7 (Version None)
Quarter: 2011Q1

REPORT INFORMATION
  Report Type: 
  Country: None (occurrence: None)
  Receive Date: 20110218
  Receipt Date: 20101213
  Transmission Date: 20110831
  Serious: Yes (Other)
  Sender: FDA-Public Use
  Company Number: US-RANBAXY-2010RR-40992

PATIENT
  Sex: Male

DRUGS (3)
  1. LEVAQUIN [Suspect]
     Indication: SINUSITIS
  2. CIPROFLOXACIN [Suspect]
     Indication: INFECTION
  3. LEVAQUIN [Suspect]
     Indication: PROSTATE INFECTION
     Dosage: UNK
     Route: 048
     Dates: start: 20040301

REACTIONS (3)
  - TENDON DISORDER [None]
  - TENDONITIS [None]
  - TENDON RUPTURE [None]
